FAERS Safety Report 15855422 (Version 1)
Quarter: 2019Q1

REPORT INFORMATION
  Report Type: Other
  Country: US (occurrence: ES)
  Receive Date: 20190122
  Receipt Date: 20190122
  Transmission Date: 20190417
  Serious: Yes (Hospitalization)
  Sender: FDA-Public Use
  Company Number: ES-BRECKENRIDGE PHARMACEUTICAL, INC.-2061574

PATIENT
  Age: 80 Year
  Sex: Female

DRUGS (7)
  1. LEVOTHYROXINE. [Concomitant]
     Active Substance: LEVOTHYROXINE
  2. IRBESARTAN. [Concomitant]
     Active Substance: IRBESARTAN
  3. ASPIRIN. [Concomitant]
     Active Substance: ASPIRIN
  4. OMEPRAZOLE. [Suspect]
     Active Substance: OMEPRAZOLE
  5. ATORVASTATIN CALCIUM. [Concomitant]
     Active Substance: ATORVASTATIN CALCIUM
  6. NIFEDIPINE. [Concomitant]
     Active Substance: NIFEDIPINE
  7. LORMETAZEPAM [Concomitant]
     Active Substance: LORMETAZEPAM

REACTIONS (2)
  - Autoimmune thyroiditis [Unknown]
  - Hypergammaglobulinaemia [Recovered/Resolved]
